FAERS Safety Report 18202636 (Version 1)
Quarter: 2020Q3

REPORT INFORMATION
  Report Type: Spontaneous
  Country: US (occurrence: US)
  Receive Date: 20200827
  Receipt Date: 20200827
  Transmission Date: 20201103
  Serious: No
  Sender: FDA-Public Use
  Company Number: None

PATIENT
  Age: 64 Year
  Weight: 60.75 kg

DRUGS (3)
  1. LEVOTHYROXIN [Concomitant]
     Active Substance: LEVOTHYROXINE
  2. OLOPATADINE HYDROCHLORIDE OPHTHALMIC SOLUTION .1% [Suspect]
     Active Substance: OLOPATADINE HYDROCHLORIDE
     Indication: HYPERSENSITIVITY
     Dosage: ?          QUANTITY:1 DROP(S);?
     Route: 047
     Dates: start: 20200822, end: 20200826
  3. GABAPENTINE [Concomitant]
     Active Substance: GABAPENTIN

REACTIONS (6)
  - Instillation site pruritus [None]
  - Product substitution issue [None]
  - Instillation site foreign body sensation [None]
  - Drug ineffective [None]
  - Instillation site erythema [None]
  - Instillation site dryness [None]

NARRATIVE: CASE EVENT DATE: 20200825
